FAERS Safety Report 13903322 (Version 1)
Quarter: 2017Q3

REPORT INFORMATION
  Report Type: Spontaneous
  Country: FR (occurrence: FR)
  Receive Date: 20170824
  Receipt Date: 20170824
  Transmission Date: 20171127
  Serious: Yes (Other)
  Sender: FDA-Public Use
  Company Number: FR-009507513-1708FRA008101

PATIENT
  Age: 72 Year
  Sex: Male

DRUGS (3)
  1. MEDROL [Suspect]
     Active Substance: METHYLPREDNISOLONE
     Indication: ASTROCYTOMA
     Dosage: 24 MG, QD
     Route: 048
     Dates: start: 201704
  2. KEPPRA [Suspect]
     Active Substance: LEVETIRACETAM
     Indication: ASTROCYTOMA
     Dosage: UNK
     Route: 048
     Dates: start: 201704
  3. TEMODAL [Suspect]
     Active Substance: TEMOZOLOMIDE
     Indication: ASTROCYTOMA
     Dosage: 750 MG, EVERY 4 WEEKS
     Route: 048
     Dates: start: 201704

REACTIONS (2)
  - Purpura [Not Recovered/Not Resolved]
  - Thrombocytopenia [Unknown]

NARRATIVE: CASE EVENT DATE: 201706
